FAERS Safety Report 19415285 (Version 2)
Quarter: 2021Q3

REPORT INFORMATION
  Report Type: Report from Study
  Country: US (occurrence: US)
  Receive Date: 20210614
  Receipt Date: 20210824
  Transmission Date: 20211014
  Serious: Yes (Other)
  Sender: FDA-Public Use
  Company Number: US-OTSUKA-2021_019450

PATIENT
  Age: 74 Year
  Sex: Female

DRUGS (1)
  1. CEDAZURIDINE AND DECITABINE [Suspect]
     Active Substance: CEDAZURIDINE\DECITABINE
     Indication: MYELODYSPLASTIC SYNDROME
     Dosage: 1 DF (35/100MG), QD (1?5 OF EACH 28 DAY CYCLE)
     Route: 048
     Dates: start: 20210524

REACTIONS (5)
  - Somnolence [Unknown]
  - Decreased appetite [Unknown]
  - Platelet count decreased [Unknown]
  - Lethargy [Unknown]
  - Transfusion [Unknown]

NARRATIVE: CASE EVENT DATE: 20210524
